FAERS Safety Report 10031405 (Version 1)
Quarter: 2014Q1

REPORT INFORMATION
  Report Type: Spontaneous
  Country: DE (occurrence: DE)
  Receive Date: 20140324
  Receipt Date: 20140324
  Transmission Date: 20141002
  Serious: Yes (Hospitalization)
  Sender: FDA-Public Use
  Company Number: DE-DRREDDYS-USA/GER/14/0039095

PATIENT
  Age: 41 Year
  Sex: Female

DRUGS (3)
  1. GEMCITABINE [Suspect]
     Indication: LUNG ADENOCARCINOMA
     Route: 065
  2. CISPLATIN [Suspect]
     Indication: LUNG ADENOCARCINOMA
     Route: 065
  3. BEVACIZUMAB [Suspect]
     Indication: LUNG ADENOCARCINOMA
     Route: 065

REACTIONS (1)
  - Posterior reversible encephalopathy syndrome [Recovering/Resolving]
